FAERS Safety Report 8198992-0 (Version None)
Quarter: 2012Q1

REPORT INFORMATION
  Report Type: 
  Country: None (occurrence: None)
  Receive Date: 20120309
  Receipt Date: 20120301
  Transmission Date: 20120608
  Serious: Yes (Other)
  Sender: FDA-Public Use
  Company Number: BR-JNJFOC-20120301491

PATIENT
  Sex: Female
  Weight: 66 kg

DRUGS (7)
  1. BUTYLSCOPOLAMINE [Suspect]
     Indication: ANALGESIC THERAPY
     Route: 065
  2. ACETAMINOPHEN [Suspect]
     Route: 065
  3. SUTENT [Concomitant]
     Indication: RENAL CANCER
     Route: 048
     Dates: start: 20120126
  4. ACETAMINOPHEN [Suspect]
     Indication: ANALGESIC THERAPY
     Route: 065
  5. ACETAMINOPHEN W/ CODEINE [Suspect]
     Indication: ANALGESIC THERAPY
     Route: 048
  6. IBUPROFEN [Suspect]
     Indication: PRODUCT USED FOR UNKNOWN INDICATION
     Route: 065
  7. BUSCOPAN PLUS [Suspect]
     Indication: ANALGESIC THERAPY
     Route: 065

REACTIONS (2)
  - CONVULSION [None]
  - APHTHOUS STOMATITIS [None]
